FAERS Safety Report 5727836-9 (Version None)
Quarter: 2008Q2

REPORT INFORMATION
  Report Type: 
  Country: None (occurrence: None)
  Receive Date: 20080505
  Receipt Date: 20080428
  Transmission Date: 20081010
  Serious: Yes (Hospitalization, Other)
  Sender: FDA-Public Use
  Company Number: US-WYE-H03825608

PATIENT
  Age: 33 Year
  Sex: Female
  Weight: 112.59 kg

DRUGS (1)
  1. TYGACIL [Suspect]
     Indication: POST PROCEDURAL INFECTION
     Route: 042
     Dates: start: 20071125, end: 20071212

REACTIONS (8)
  - ABDOMINAL PAIN UPPER [None]
  - DIARRHOEA [None]
  - KIDNEY INFECTION [None]
  - NAUSEA [None]
  - NEPHROLITHIASIS [None]
  - ORAL INTAKE REDUCED [None]
  - VOMITING [None]
  - WEIGHT DECREASED [None]
